FAERS Safety Report 5228419-X (Version None)
Quarter: 2007Q1

REPORT INFORMATION
  Report Type: 
  Country: None (occurrence: None)
  Receive Date: 20070131
  Receipt Date: 20070131
  Transmission Date: 20070707
  Serious: Yes (Life-Threatening)
  Sender: FDA-Public Use
  Company Number: None

PATIENT
  Age: 4 Year
  Sex: Male
  Weight: 17 kg

DRUGS (2)
  1. ANCEF [Suspect]
     Indication: PROPHYLAXIS
     Dosage: 500 MG Q8 HOURS IV * 2 DOSES
     Route: 042
     Dates: start: 20060817
  2. TYLENOL W/ CODEINE [Suspect]
     Indication: PROCEDURAL PAIN
     Dosage: 5ML Q 4 HOURS PRN PO X 2 DOSES
     Route: 048
     Dates: start: 20060817

REACTIONS (7)
  - COUGH [None]
  - ILL-DEFINED DISORDER [None]
  - INFUSION RELATED REACTION [None]
  - INTERCOSTAL RETRACTION [None]
  - PHARYNGOLARYNGEAL DISCOMFORT [None]
  - POST PROCEDURAL COMPLICATION [None]
  - STRIDOR [None]
